FAERS Safety Report 7299187-5 (Version None)
Quarter: 2010Q4

REPORT INFORMATION
  Report Type: 
  Country: None (occurrence: None)
  Receive Date: 20101223
  Receipt Date: 20101001
  Transmission Date: 20110411
  Serious: Yes (Other)
  Sender: FDA-Public Use
  Company Number: 250538USA

PATIENT
  Age: 36 Year
  Sex: Female

DRUGS (2)
  1. PARAGARD T 380A [Suspect]
     Indication: CONTRACEPTION
     Dosage: I.U.
     Dates: end: 20100929
  2. EFFIXAR [Concomitant]

REACTIONS (3)
  - DEVICE DISLOCATION [None]
  - DYSMENORRHOEA [None]
  - VAGINAL HAEMORRHAGE [None]
